FAERS Safety Report 5341098-6 (Version None)
Quarter: 2007Q2

REPORT INFORMATION
  Report Type: 
  Country: None (occurrence: None)
  Receive Date: 20070405
  Receipt Date: 20060921
  Transmission Date: 20071010
  Serious: Yes (Hospitalization)
  Sender: FDA-Public Use
  Company Number: 2006-05060

PATIENT
  Age: 29 Year
  Sex: Female
  Weight: 93.9 kg

DRUGS (2)
  1. FERRLECIT [Suspect]
     Indication: DRUG USE FOR UNKNOWN INDICATION
     Dosage: 125 MG IN 150 ML SALINE/1 HOUR; INTRAVENOUS
     Route: 042
     Dates: start: 20060920, end: 20060920
  2. LISINOPRIL [Concomitant]

REACTIONS (5)
  - BACK PAIN [None]
  - BLOOD PRESSURE INCREASED [None]
  - CHEST PAIN [None]
  - DYSPNOEA [None]
  - HYPERSENSITIVITY [None]
